FAERS Safety Report 8337565-3 (Version None)
Quarter: 2012Q2

REPORT INFORMATION
  Report Type: 
  Country: None (occurrence: None)
  Receive Date: 20120504
  Receipt Date: 20111102
  Transmission Date: 20120825
  Serious: Yes (Hospitalization, Other)
  Sender: FDA-Public Use
  Company Number: CH-ROCHE-801056

PATIENT
  Age: 44 Year
  Sex: Male

DRUGS (3)
  1. AVASTIN [Suspect]
     Indication: LUNG ADENOCARCINOMA METASTATIC
     Dosage: RECENR DOSE PRIOR SAE WAS ON:29/AUG/2011
     Route: 042
  2. CISPLATIN [Suspect]
     Indication: LUNG ADENOCARCINOMA METASTATIC
     Dosage: RECENR DOSE PRIOR SAE WAS ON:29/AUG/2011
     Route: 042
  3. PEMETREXED DISODIUM [Suspect]
     Indication: LUNG ADENOCARCINOMA METASTATIC
     Dosage: RECENR DOSE PRIOR SAE WAS ON:29/AUG/2011
     Route: 042

REACTIONS (3)
  - BONE MARROW FAILURE [None]
  - MENTAL DISORDER [None]
  - NEUTROPHIL COUNT DECREASED [None]
